FAERS Safety Report 19477362 (Version 5)
Quarter: 2021Q3

REPORT INFORMATION
  Report Type: Spontaneous
  Country: MX (occurrence: MX)
  Receive Date: 20210630
  Receipt Date: 20210820
  Transmission Date: 20211014
  Serious: Yes (Life-Threatening, Hospitalization, Other)
  Sender: FDA-Public Use
  Company Number: MX-BEH-2021133471

PATIENT
  Age: 66 Year
  Sex: Male
  Weight: 77 kg

DRUGS (2)
  1. COMBODART [Concomitant]
     Active Substance: DUTASTERIDE\TAMSULOSIN
     Indication: BENIGN PROSTATIC HYPERPLASIA
     Dosage: 1 DOSAGE FORM, QD
  2. HIGLOBIN [Suspect]
     Active Substance: HUMAN IMMUNOGLOBULIN G
     Indication: IMMUNODEFICIENCY COMMON VARIABLE
     Dosage: 14 GRAM (13 TO 14 GRAM)
     Route: 042
     Dates: start: 20210625, end: 20210625

REACTIONS (9)
  - Diarrhoea [Recovered/Resolved]
  - Bacteraemia [Recovered/Resolved]
  - Sepsis [Recovered/Resolved]
  - Chills [Recovered/Resolved]
  - Pyrexia [Recovered/Resolved]
  - Acute kidney injury [Recovered/Resolved]
  - General physical health deterioration [Recovered/Resolved]
  - Counterfeit product administered [Unknown]
  - Discomfort [Recovered/Resolved]

NARRATIVE: CASE EVENT DATE: 20210625
